FAERS Safety Report 7088905-7 (Version None)
Quarter: 2010Q4

REPORT INFORMATION
  Report Type: 
  Country: None (occurrence: None)
  Receive Date: 20101108
  Receipt Date: 20101026
  Transmission Date: 20110411
  Serious: Yes (Hospitalization)
  Sender: FDA-Public Use
  Company Number: CZ-ELI_LILLY_AND_COMPANY-CZ201010001685

PATIENT
  Age: 52 Year
  Sex: Female

DRUGS (2)
  1. ZYPREXA [Suspect]
     Indication: BIPOLAR DISORDER
     Dosage: 20 MG, DAILY (1/D)
     Route: 048
     Dates: start: 20070101
  2. ORFIRIL [Concomitant]
     Indication: BIPOLAR DISORDER
     Dosage: 300 MG, TOTAL DAILY DOSE
     Route: 048

REACTIONS (2)
  - BIPOLAR DISORDER [None]
  - ISCHAEMIC STROKE [None]
